FAERS Safety Report 7756589-8 (Version None)
Quarter: 2011Q3

REPORT INFORMATION
  Report Type: 
  Country: None (occurrence: None)
  Receive Date: 20110916
  Receipt Date: 20110909
  Transmission Date: 20111222
  Serious: Yes (Hospitalization)
  Sender: FDA-Public Use
  Company Number: PHHO2011FR14675

PATIENT
  Sex: Female
  Weight: 67 kg

DRUGS (5)
  1. NEORAL [Suspect]
     Dosage: 100+75
     Route: 048
     Dates: start: 20110825
  2. MYCOPHENOLATE MOFETIL (CELLCEPT) [Concomitant]
     Indication: RENAL TRANSPLANT
     Dosage: 2 G, UNK
     Route: 048
     Dates: start: 20110730
  3. NEORAL [Suspect]
     Indication: RENAL TRANSPLANT
     Dosage: 250 MG, UNK
     Route: 048
     Dates: start: 20110802
  4. NEORAL [Suspect]
     Dosage: 75+75
     Route: 048
     Dates: start: 20110826
  5. PREDNISONE [Concomitant]
     Indication: RENAL TRANSPLANT
     Dosage: 20 MG, UNK
     Route: 048
     Dates: start: 20110731

REACTIONS (3)
  - DELUSION [None]
  - HYPONATRAEMIA [None]
  - GRAFT DYSFUNCTION [None]
